FAERS Safety Report 14436849 (Version 1)
Quarter: 2018Q1

REPORT INFORMATION
  Report Type: Spontaneous
  Country: HU (occurrence: HU)
  Receive Date: 20180125
  Receipt Date: 20180125
  Transmission Date: 20180509
  Serious: Yes (Death, Other)
  Sender: FDA-Public Use
  Company Number: HU-ACTELION-A-CH2018-165795

PATIENT
  Age: 28 Year
  Sex: Female

DRUGS (3)
  1. STAYVEER [Suspect]
     Active Substance: BOSENTAN
     Indication: PULMONARY ARTERIAL HYPERTENSION
     Dosage: 125 MG, BID
     Route: 048
     Dates: start: 20170925, end: 20180111
  2. ADCIRCA [Concomitant]
     Active Substance: TADALAFIL
     Indication: PULMONARY ARTERIAL HYPERTENSION
     Dosage: 40 MG, OD
     Dates: start: 20150411, end: 20180111
  3. REMODULIN [Concomitant]
     Active Substance: TREPROSTINIL
     Indication: PULMONARY ARTERIAL HYPERTENSION
     Dosage: 20 MG, UNK
     Dates: start: 20171106, end: 20180111

REACTIONS (7)
  - Systemic lupus erythematosus [Fatal]
  - Abdominal abscess [Unknown]
  - Sepsis [Fatal]
  - Cardiac failure [Fatal]
  - Circulatory collapse [Fatal]
  - Pyrexia [Fatal]
  - Hypotonia [Fatal]

NARRATIVE: CASE EVENT DATE: 20180111
